FAERS Safety Report 5243994-7 (Version None)
Quarter: 2007Q1

REPORT INFORMATION
  Report Type: 
  Country: None (occurrence: None)
  Receive Date: 20070222
  Receipt Date: 20070216
  Transmission Date: 20070707
  Serious: Yes (Hospitalization)
  Sender: FDA-Public Use
  Company Number: 2007UW03194

PATIENT
  Age: 55 Year
  Sex: Male
  Weight: 102.1 kg

DRUGS (1)
  1. TOPROL-XL [Suspect]
     Indication: HEART RATE ABNORMAL
     Route: 048
     Dates: start: 20061220

REACTIONS (3)
  - ABDOMINAL PAIN UPPER [None]
  - PANCREATITIS [None]
  - SPHINCTER OF ODDI DYSFUNCTION [None]
